FAERS Safety Report 25253804 (Version 3)
Quarter: 2025Q2

REPORT INFORMATION
  Report Type: Spontaneous
  Country: US (occurrence: US)
  Receive Date: 20250430
  Receipt Date: 20250611
  Transmission Date: 20250717
  Serious: Yes (Hospitalization, Other)
  Sender: SYNDAX
  Company Number: US-SYNDAX PHARMACEUTICALS, INC.-2025US000386

PATIENT
  Sex: Female
  Weight: 84.186 kg

DRUGS (2)
  1. REVUFORJ [Suspect]
     Active Substance: REVUMENIB CITRATE
     Indication: Acute myeloid leukaemia
     Dosage: 270 MILLIGRAM, BID
     Route: 048
  2. REVUFORJ [Suspect]
     Active Substance: REVUMENIB CITRATE
     Dosage: 160 MILLIGRAM, BID
     Route: 048
     Dates: start: 20250409

REACTIONS (6)
  - Platelet count decreased [Unknown]
  - Thrombosis [Unknown]
  - Bone marrow transplant [Unknown]
  - White blood cell count decreased [Unknown]
  - Dry mouth [Unknown]
  - Lip dry [Unknown]
